FAERS Safety Report 9416511 (Version 1)
Quarter: 2013Q3

REPORT INFORMATION
  Report Type: Report from Study
  Country: CA (occurrence: CA)
  Receive Date: 20130724
  Receipt Date: 20130724
  Transmission Date: 20140515
  Serious: Yes (Hospitalization)
  Sender: FDA-Public Use
  Company Number: CA-JNJFOC-20130711705

PATIENT
  Age: 46 Year
  Sex: Male
  Weight: 77 kg

DRUGS (9)
  1. REMICADE [Suspect]
     Indication: CROHN^S DISEASE
     Route: 042
  2. METHOTREXATE [Concomitant]
     Route: 065
  3. FERROUS GLUCONATE [Concomitant]
     Route: 048
  4. RABEPRAZOLE [Concomitant]
     Route: 048
  5. LACTULOSE [Concomitant]
     Dosage: 30 CC
     Route: 048
  6. PENTASA [Concomitant]
     Route: 048
  7. FOLIC ACID [Concomitant]
     Route: 048
  8. VITAMIN B 12 [Concomitant]
     Route: 048
  9. WARFARIN [Concomitant]
     Route: 048

REACTIONS (6)
  - Malaise [Recovered/Resolved]
  - Dizziness [Recovered/Resolved]
  - Nausea [Recovered/Resolved]
  - Diarrhoea [Recovered/Resolved]
  - Abdominal discomfort [Recovered/Resolved]
  - Dehydration [Recovered/Resolved]
